FAERS Safety Report 6743646-8 (Version None)
Quarter: 2010Q2

REPORT INFORMATION
  Report Type: 
  Country: None (occurrence: None)
  Receive Date: 20100527
  Receipt Date: 20100518
  Transmission Date: 20101027
  Serious: Yes (Other)
  Sender: FDA-Public Use
  Company Number: ES-JNJFOC-20100507053

PATIENT
  Age: 12 Year
  Sex: Female
  Weight: 20 kg

DRUGS (5)
  1. INTELENCE [Suspect]
     Indication: HIV INFECTION
     Route: 065
  2. PREZISTA [Concomitant]
     Indication: HIV INFECTION
     Route: 065
  3. TENOFOVIR [Concomitant]
     Indication: HIV INFECTION
  4. RITONAVIR [Concomitant]
     Indication: HIV INFECTION
  5. SEPTRIN FORTE [Concomitant]
     Indication: OPPORTUNISTIC INFECTION PROPHYLAXIS

REACTIONS (2)
  - HYPOKALAEMIA [None]
  - OFF LABEL USE [None]
